FAERS Safety Report 13446207 (Version 1)
Quarter: 2017Q2

REPORT INFORMATION
  Report Type: Spontaneous
  Country: IT (occurrence: IT)
  Receive Date: 20170417
  Receipt Date: 20170417
  Transmission Date: 20170830
  Serious: Yes (Hospitalization, Other)
  Sender: FDA-Public Use
  Company Number: IT-ALEMBIC PHARMACUETICALS LIMITED-2017SCAL000321

PATIENT

DRUGS (1)
  1. LAMOTRIGINE. [Suspect]
     Active Substance: LAMOTRIGINE
     Indication: PRODUCT USED FOR UNKNOWN INDICATION
     Dosage: UNK

REACTIONS (14)
  - Oculogyric crisis [Unknown]
  - Bundle branch block right [Unknown]
  - Hyperkinesia [Not Recovered/Not Resolved]
  - Dystonia [Unknown]
  - Hyperphagia [Unknown]
  - Thirst [Recovered/Resolved]
  - Generalised tonic-clonic seizure [Unknown]
  - Ataxia [Not Recovered/Not Resolved]
  - Increased appetite [Recovered/Resolved]
  - Loss of consciousness [Unknown]
  - Accidental overdose [Unknown]
  - Toxicity to various agents [Unknown]
  - Sinus tachycardia [Unknown]
  - Dysmetria [Not Recovered/Not Resolved]
